FAERS Safety Report 21440577 (Version 1)
Quarter: 2022Q4

REPORT INFORMATION
  Report Type: Spontaneous
  Country: US (occurrence: None)
  Receive Date: 20221007
  Receipt Date: 20221007
  Transmission Date: 20230113
  Serious: Yes (Other)
  Sender: FDA-Public Use
  Company Number: None

PATIENT
  Age: 48 Year
  Sex: Male
  Weight: 87.75 kg

DRUGS (1)
  1. PROPECIA [Suspect]
     Active Substance: FINASTERIDE
     Indication: Alopecia

REACTIONS (3)
  - Depressed level of consciousness [None]
  - Erectile dysfunction [None]
  - Male orgasmic disorder [None]

NARRATIVE: CASE EVENT DATE: 20000101
